FAERS Safety Report 5671864-9 (Version None)
Quarter: 2008Q1

REPORT INFORMATION
  Report Type: 
  Country: None (occurrence: None)
  Receive Date: 20080317
  Receipt Date: 20080317
  Transmission Date: 20080703
  Serious: Yes (Other)
  Sender: FDA-Public Use
  Company Number: None

PATIENT
  Age: 52 Year
  Sex: Female
  Weight: 72.5755 kg

DRUGS (4)
  1. AVELOX [Suspect]
     Indication: CYSTITIS
     Dates: start: 20071216, end: 20071226
  2. AVELOX [Suspect]
     Indication: SINUSITIS
     Dates: start: 20071216, end: 20071226
  3. AVELOX [Suspect]
     Indication: CYSTITIS
     Dates: start: 20080304, end: 20080310
  4. AVELOX [Suspect]
     Indication: SINUSITIS
     Dates: start: 20080304, end: 20080310

REACTIONS (5)
  - ARTHRALGIA [None]
  - HEART RATE ABNORMAL [None]
  - NEUROPATHY PERIPHERAL [None]
  - SYNCOPE [None]
  - TENDON PAIN [None]
